FAERS Safety Report 5500944-3 (Version None)
Quarter: 2007Q4

REPORT INFORMATION
  Report Type: 
  Country: None (occurrence: None)
  Receive Date: 20071029
  Receipt Date: 20071017
  Transmission Date: 20080405
  Serious: Yes (Disabling, Other)
  Sender: FDA-Public Use
  Company Number: PHBS2007JP16110

PATIENT
  Age: 46 Year
  Sex: Female

DRUGS (6)
  1. NEORAL [Suspect]
     Indication: ALLOGENIC BONE MARROW TRANSPLANTATION THERAPY
     Dosage: UNK, UNK
     Route: 048
     Dates: end: 20070322
  2. SANDIMMUNE [Suspect]
     Indication: ALLOGENIC BONE MARROW TRANSPLANTATION THERAPY
     Dosage: 3 MG/KG/DAY
     Route: 042
     Dates: start: 20061212
  3. CYCLOPHOSPHAMIDE [Suspect]
  4. METHOTREXATE [Concomitant]
     Indication: ALLOGENIC BONE MARROW TRANSPLANTATION THERAPY
  5. CAMPATH [Concomitant]
  6. FLUDARABINE PHOSPHATE [Concomitant]

REACTIONS (7)
  - BLOOD LACTATE DEHYDROGENASE INCREASED [None]
  - CYTOMEGALOVIRUS ANTIGEN POSITIVE [None]
  - FOCAL GLOMERULOSCLEROSIS [None]
  - HAPTOGLOBIN DECREASED [None]
  - PROTEINURIA [None]
  - RED BLOOD CELL ABNORMALITY [None]
  - THROMBOTIC MICROANGIOPATHY [None]
